FAERS Safety Report 25411447 (Version 1)
Quarter: 2025Q2

REPORT INFORMATION
  Report Type: Spontaneous
  Country: HU (occurrence: HU)
  Receive Date: 20250609
  Receipt Date: 20250609
  Transmission Date: 20250716
  Serious: Yes (Other)
  Sender: ROCHE
  Company Number: HU-ROCHE-10000298702

PATIENT

DRUGS (1)
  1. KADCYLA [Suspect]
     Active Substance: ADO-TRASTUZUMAB EMTANSINE
     Indication: Product used for unknown indication
     Route: 065

REACTIONS (9)
  - Arthralgia [Unknown]
  - Dizziness [Unknown]
  - Heart rate abnormal [Unknown]
  - Asthenia [Unknown]
  - Hot flush [Unknown]
  - Night sweats [Unknown]
  - Gastrointestinal disorder [Unknown]
  - Erythema [Unknown]
  - Hyperhidrosis [Unknown]
